FAERS Safety Report 9321719 (Version 1)
Quarter: 2013Q2

REPORT INFORMATION
  Report Type: Spontaneous
  Country: PT (occurrence: None)
  Receive Date: 20130529
  Receipt Date: 20130529
  Transmission Date: 20140414
  Serious: Yes (Life-Threatening)
  Sender: FDA-Public Use
  Company Number: FK201301635

PATIENT
  Age: 72 Year
  Sex: Female

DRUGS (2)
  1. OXALIPLATIN [Suspect]
     Indication: COLON CANCER METASTATIC
     Route: 042
     Dates: start: 20130507, end: 20130507
  2. CALCIUM FOLINATE(CALCIUM FOLINATE) [Concomitant]

REACTIONS (8)
  - Anaphylactic shock [None]
  - Depressed level of consciousness [None]
  - Hypoaesthesia [None]
  - Nausea [None]
  - Apathy [None]
  - Hypovolaemia [None]
  - Malaise [None]
  - Hypotension [None]
